FAERS Safety Report 8247327-3 (Version None)
Quarter: 2012Q1

REPORT INFORMATION
  Report Type: 
  Country: None (occurrence: None)
  Receive Date: 20120316
  Receipt Date: 20100311
  Transmission Date: 20120608
  Serious: Yes (Other)
  Sender: FDA-Public Use
  Company Number: PHEH2010US03053

PATIENT
  Sex: Male

DRUGS (6)
  1. MINOXIDIL [Concomitant]
  2. CLONIDINE [Concomitant]
  3. LISINOPRIL [Concomitant]
  4. TEKTURNA [Suspect]
     Dosage: 150 MG, UNK, UNKNOWN
     Dates: start: 20100308
  5. LABETALOL HCL [Concomitant]
  6. ACE INHIBITOR NOS (NO INGREDIENTS/SUBSTANCES) [Concomitant]

REACTIONS (2)
  - LIP SWELLING [None]
  - DIARRHOEA [None]
